FAERS Safety Report 16591650 (Version 1)
Quarter: 2019Q3

REPORT INFORMATION
  Report Type: Report from Study
  Country: AU (occurrence: AU)
  Receive Date: 20190718
  Receipt Date: 20190718
  Transmission Date: 20191004
  Serious: Yes (Other)
  Sender: FDA-Public Use
  Company Number: AU-EMD SERONO-9069196

PATIENT
  Age: 44 Year
  Sex: Female

DRUGS (1)
  1. MAVENCLAD [Suspect]
     Active Substance: CLADRIBINE
     Indication: MULTIPLE SCLEROSIS
     Dosage: FIRST WEEK THERAPY
     Dates: start: 20190101

REACTIONS (9)
  - Headache [Unknown]
  - Cough [Unknown]
  - Nephrolithiasis [Recovering/Resolving]
  - Rash [Recovered/Resolved]
  - Herpes zoster [Recovered/Resolved]
  - Influenza like illness [Unknown]
  - Myalgia [Unknown]
  - Alopecia [Recovering/Resolving]
  - Multiple sclerosis relapse [Unknown]

NARRATIVE: CASE EVENT DATE: 201901
